FAERS Safety Report 12907670 (Version 1)
Quarter: 2016Q4

REPORT INFORMATION
  Report Type: Report from Study
  Country: AU (occurrence: AU)
  Receive Date: 20161103
  Receipt Date: 20161103
  Transmission Date: 20170207
  Serious: Yes (Hospitalization)
  Sender: FDA-Public Use
  Company Number: AU-ASTELLAS-2016US006280

PATIENT
  Age: 74 Year
  Sex: Male
  Weight: 65 kg

DRUGS (12)
  1. LIPITOR [Concomitant]
     Active Substance: ATORVASTATIN CALCIUM
     Indication: PRODUCT USED FOR UNKNOWN INDICATION
     Route: 065
     Dates: start: 1990, end: 20160118
  2. VEMURAFENIB [Suspect]
     Active Substance: VEMURAFENIB
     Indication: RECTAL CANCER
     Dosage: 960 MG, TWICE DAILY (DATE OF LAST DOSE PRIOR TO SAE: 07/FEB/2016)
     Route: 048
     Dates: start: 20160118, end: 20160207
  3. SOTALOL. [Concomitant]
     Active Substance: SOTALOL
     Indication: PRODUCT USED FOR UNKNOWN INDICATION
     Route: 065
     Dates: start: 200612
  4. ROSUVASTATIN. [Concomitant]
     Active Substance: ROSUVASTATIN
     Indication: PRODUCT USED FOR UNKNOWN INDICATION
     Route: 065
     Dates: start: 2005, end: 20160118
  5. CLEXANE [Concomitant]
     Active Substance: ENOXAPARIN SODIUM
     Indication: PRODUCT USED FOR UNKNOWN INDICATION
     Route: 065
     Dates: start: 201410
  6. MINOCYCLINE [Concomitant]
     Active Substance: MINOCYCLINE\MINOCYCLINE HYDROCHLORIDE
     Indication: PRODUCT USED FOR UNKNOWN INDICATION
     Route: 065
     Dates: start: 20160202
  7. ERLOTINIB [Suspect]
     Active Substance: ERLOTINIB
     Indication: RECTAL CANCER
     Dosage: 150 MG, ONCE DAILY (DATE OF LAST DOSE PRIOR TO SAE: 07/FEB/2016)
     Route: 048
     Dates: start: 20160118, end: 20160207
  8. ERLOTINIB [Suspect]
     Active Substance: ERLOTINIB
     Indication: COLON CANCER
     Route: 048
     Dates: start: 20160219
  9. TARGIN [Concomitant]
     Active Substance: NALOXONE HYDROCHLORIDE\OXYCODONE HYDROCHLORIDE
     Indication: PRODUCT USED FOR UNKNOWN INDICATION
     Dosage: 40/20 MG TOTAL DAILY DOSE
     Route: 065
     Dates: start: 201410
  10. OXYNORM [Concomitant]
     Active Substance: OXYCODONE HYDROCHLORIDE
     Indication: PRODUCT USED FOR UNKNOWN INDICATION
     Route: 065
     Dates: start: 201410
  11. VEMURAFENIB [Suspect]
     Active Substance: VEMURAFENIB
     Indication: COLON CANCER
     Route: 048
     Dates: start: 20160219
  12. ALLOPURINOL. [Concomitant]
     Active Substance: ALLOPURINOL
     Indication: PRODUCT USED FOR UNKNOWN INDICATION
     Route: 065
     Dates: start: 1989

REACTIONS (4)
  - Dehydration [Recovered/Resolved]
  - Nausea [Recovered/Resolved]
  - Lymph node pain [Recovered/Resolved]
  - Diarrhoea [Recovered/Resolved]

NARRATIVE: CASE EVENT DATE: 20160131
